FAERS Safety Report 7976989 (Version 3)
Quarter: 2013Q4

REPORT INFORMATION
  Report Type: Spontaneous
  Country: US (occurrence: US)
  Receive Date: 20110607
  Receipt Date: 20131127
  Transmission Date: 20140711
  Serious: Yes (Other)
  Sender: FDA-Public Use
  Company Number: US-ASTRAZENECA-2011SE32220

PATIENT
  Age: 55 Year
  Sex: Female
  Weight: 80.7 kg

DRUGS (11)
  1. NEXIUM [Suspect]
     Indication: GASTROOESOPHAGEAL REFLUX DISEASE
     Route: 048
     Dates: start: 2009
  2. NEXIUM [Suspect]
     Indication: GASTROOESOPHAGEAL REFLUX DISEASE
     Route: 048
     Dates: start: 20090921
  3. PREVACID [Concomitant]
     Indication: GASTROOESOPHAGEAL REFLUX DISEASE
  4. PRILOSEC [Concomitant]
     Indication: DYSPEPSIA
     Route: 048
     Dates: start: 20090402
  5. PROTONIX [Concomitant]
     Indication: GASTROOESOPHAGEAL REFLUX DISEASE
     Route: 048
     Dates: start: 20090330
  6. PEPCID [Concomitant]
  7. ALKA-SELTZER [Concomitant]
  8. ENJUVIA [Concomitant]
     Route: 048
     Dates: start: 20080515
  9. HYDROCODONE/APAP [Concomitant]
     Indication: PAIN
     Dosage: 50/500MG , 1 OR 2 TAB 4 TO 6 HRS EVERY DAY
     Route: 048
     Dates: start: 20081001
  10. MELOXICAM [Concomitant]
     Route: 048
     Dates: start: 20090330
  11. BIEST [Concomitant]
     Route: 048
     Dates: start: 20090316

REACTIONS (7)
  - Bone disorder [Unknown]
  - Osteoporosis [Unknown]
  - Foot fracture [Unknown]
  - Osteopenia [Unknown]
  - Spinal column stenosis [Unknown]
  - Intervertebral disc degeneration [Unknown]
  - Intervertebral disc protrusion [Unknown]
